FAERS Safety Report 13772838 (Version 1)
Quarter: 2017Q3

REPORT INFORMATION
  Report Type: Spontaneous
  Country: FR (occurrence: FR)
  Receive Date: 20170720
  Receipt Date: 20170720
  Transmission Date: 20171127
  Serious: Yes (Hospitalization, Other)
  Sender: FDA-Public Use
  Company Number: FR-SHIRE-FR201714601

PATIENT

DRUGS (13)
  1. METHOTREXATE (METHOTREXATE SODIUM) [Suspect]
     Active Substance: METHOTREXATE SODIUM
     Dosage: 3 INJ / 15 MG
     Route: 037
     Dates: start: 20170516, end: 20170612
  2. VINCRISTINE [Suspect]
     Active Substance: VINCRISTINE
     Dosage: 4 INJ / 2 MG
     Dates: start: 20170530, end: 20170530
  3. VINCRISTINE [Suspect]
     Active Substance: VINCRISTINE
     Indication: ACUTE LYMPHOCYTIC LEUKAEMIA
     Dosage: 4 INJ / 2 MG
     Route: 042
     Dates: start: 20170616, end: 20170616
  4. VINCRISTINE [Suspect]
     Active Substance: VINCRISTINE
     Dosage: 4 INJ / 2 MG
     Dates: start: 20170609, end: 20170609
  5. HYDROCORTANCYL                     /00016201/ [Suspect]
     Active Substance: PREDNISONE
     Indication: ACUTE LYMPHOCYTIC LEUKAEMIA
     Dosage: 2 INJ / 15 MG
     Route: 037
     Dates: start: 20170531, end: 20170612
  6. VINCRISTINE [Suspect]
     Active Substance: VINCRISTINE
     Dosage: 4 INJ / 2 MG
     Dates: start: 20170526, end: 20170616
  7. DAUNOXOME [Suspect]
     Active Substance: DAUNORUBICIN CITRATE
     Dosage: 4 INJ / 50 MG
     Route: 042
     Dates: start: 20170609, end: 20170609
  8. ONCASPAR [Suspect]
     Active Substance: PEGASPARGASE
     Indication: ACUTE LYMPHOCYTIC LEUKAEMIA
     Dosage: 2 INJ / 4.13 KU
     Route: 042
     Dates: start: 20170530, end: 20170613
  9. DAUNOXOME [Suspect]
     Active Substance: DAUNORUBICIN CITRATE
     Indication: ACUTE LYMPHOCYTIC LEUKAEMIA
     Dosage: 4 INJ / 50 MG
     Route: 042
     Dates: start: 20170616, end: 20170616
  10. CYTARABINE KABI [Suspect]
     Active Substance: CYTARABINE
     Indication: PRODUCT USED FOR UNKNOWN INDICATION
     Dosage: 2 INJ / 30 MG
     Route: 037
     Dates: start: 20170531, end: 20170612
  11. DAUNOXOME [Suspect]
     Active Substance: DAUNORUBICIN CITRATE
     Dosage: 4 INJ / 50 MG
     Route: 042
     Dates: start: 20170526, end: 20170616
  12. DAUNOXOME [Suspect]
     Active Substance: DAUNORUBICIN CITRATE
     Dosage: 4 INJ / 50 MG
     Route: 042
     Dates: start: 20170530, end: 20170530
  13. METHOTREXATE (METHOTREXATE SODIUM) [Suspect]
     Active Substance: METHOTREXATE SODIUM
     Indication: ACUTE LYMPHOCYTIC LEUKAEMIA
     Dosage: 3 INJ / 15 MG
     Route: 037
     Dates: start: 20170531, end: 20170531

REACTIONS (7)
  - Febrile bone marrow aplasia [Unknown]
  - Posterior reversible encephalopathy syndrome [Recovering/Resolving]
  - Septic shock [Unknown]
  - Hypotension [Unknown]
  - Pharyngeal inflammation [Unknown]
  - Cardiac failure [Unknown]
  - Hyperthermia [Unknown]

NARRATIVE: CASE EVENT DATE: 20170617
